FAERS Safety Report 9318909 (Version 1)
Quarter: 2013Q2

REPORT INFORMATION
  Report Type: Spontaneous
  Country: US (occurrence: US)
  Receive Date: 20130530
  Receipt Date: 20130530
  Transmission Date: 20140414
  Serious: Yes (Other)
  Sender: FDA-Public Use
  Company Number: US-PFIZER INC-2013163418

PATIENT
  Age: 39 Year
  Sex: Female
  Weight: 67.12 kg

DRUGS (1)
  1. NICOTROL INHALER [Suspect]
     Indication: SMOKING CESSATION THERAPY
     Dosage: UNK
     Route: 048
     Dates: start: 2010

REACTIONS (4)
  - Ovarian neoplasm [Unknown]
  - Fallopian tube neoplasm [Unknown]
  - Precancerous cells present [Unknown]
  - Polyp [Unknown]
